FAERS Safety Report 12470121 (Version 4)
Quarter: 2016Q4

REPORT INFORMATION
  Report Type: Spontaneous
  Country: NL (occurrence: NL)
  Receive Date: 20160616
  Receipt Date: 20161212
  Transmission Date: 20170207
  Serious: Yes (Other)
  Sender: FDA-Public Use
  Company Number: NL-ROCHE-1775253

PATIENT
  Sex: Female

DRUGS (4)
  1. LUCENTIS [Suspect]
     Active Substance: RANIBIZUMAB
     Dosage: 1 DF, QMO
     Route: 065
     Dates: start: 2014
  2. VITAMIN K2 [Concomitant]
     Active Substance: MENAQUINONE 6
     Indication: PRODUCT USED FOR UNKNOWN INDICATION
     Dosage: HIGH DOSES
     Route: 065
  3. ISOPTIN [Concomitant]
     Active Substance: VERAPAMIL HYDROCHLORIDE
     Indication: PRODUCT USED FOR UNKNOWN INDICATION
     Route: 065
  4. LUCENTIS [Suspect]
     Active Substance: RANIBIZUMAB
     Indication: NEOVASCULAR AGE-RELATED MACULAR DEGENERATION
     Route: 065
     Dates: start: 2013

REACTIONS (18)
  - Macular degeneration [Unknown]
  - Inappropriate schedule of drug administration [Unknown]
  - Visual acuity reduced [Unknown]
  - Syringe issue [Unknown]
  - Blood urea increased [Unknown]
  - Eye disorder [Unknown]
  - Gastrointestinal disorder [Unknown]
  - Retinal disorder [Unknown]
  - Lacrimation increased [Unknown]
  - Glaucoma [Unknown]
  - Melatonin deficiency [Unknown]
  - Subretinal fluid [Unknown]
  - Gastrointestinal disorder [Recovered/Resolved]
  - Endothelial dysfunction [Unknown]
  - Intraocular melanoma [Unknown]
  - Abdominal pain [Unknown]
  - Vision blurred [Unknown]
  - Cyst [Unknown]
